FAERS Safety Report 21093198 (Version 5)
Quarter: 2023Q4

REPORT INFORMATION
  Report Type: Report from Study
  Country: US (occurrence: US)
  Receive Date: 20220718
  Receipt Date: 20231120
  Transmission Date: 20240110
  Serious: Yes (Other)
  Sender: FDA-Public Use
  Company Number: US-TAKEDA-2020TUS044393

PATIENT
  Sex: Female

DRUGS (3)
  1. HUMAN IMMUNOGLOBULIN G [Suspect]
     Active Substance: HUMAN IMMUNOGLOBULIN G
     Indication: Immunodeficiency common variable
     Dosage: UNK
     Route: 042
  2. INFLUENZA VIRUS VACCINE [Suspect]
     Active Substance: INFLUENZA VIRUS VACCINE
     Indication: Product used for unknown indication
     Dosage: UNK
     Route: 065
  3. UNSPECIFIED INGREDIENT [Suspect]
     Active Substance: UNSPECIFIED INGREDIENT
     Indication: Product used for unknown indication
     Dosage: UNK
     Route: 065

REACTIONS (20)
  - Sinusitis bacterial [Unknown]
  - Pulmonary oedema [Unknown]
  - Gait disturbance [Unknown]
  - Joint injury [Unknown]
  - Gastric dilatation [Unknown]
  - Urinary tract infection [Unknown]
  - Alopecia [Recovered/Resolved]
  - Bronchitis [Unknown]
  - Dysgeusia [Unknown]
  - COVID-19 [Unknown]
  - Upper-airway cough syndrome [Unknown]
  - Impaired healing [Unknown]
  - Blood glucose fluctuation [Unknown]
  - Subcutaneous abscess [Unknown]
  - Skin wrinkling [Unknown]
  - Bronchospasm [Unknown]
  - Asthenia [Unknown]
  - Anaemia [Unknown]
  - Oedema peripheral [Unknown]
  - Cough [Unknown]
